FAERS Safety Report 7176418-3 (Version None)
Quarter: 2010Q4

REPORT INFORMATION
  Report Type: 
  Country: None (occurrence: None)
  Receive Date: 20101220
  Receipt Date: 20101207
  Transmission Date: 20110411
  Serious: Yes (Other)
  Sender: FDA-Public Use
  Company Number: US-RANBAXY-2010US-38190

PATIENT

DRUGS (7)
  1. VERAPAMIL [Suspect]
     Indication: PALPITATIONS
     Dosage: ONE DOSE
     Route: 065
  2. VERAPAMIL [Suspect]
  3. MESALAZINE [Concomitant]
     Indication: PRODUCT USED FOR UNKNOWN INDICATION
     Dosage: 400 MG, TID
     Route: 048
  4. PREDNISONE [Concomitant]
     Indication: PRODUCT USED FOR UNKNOWN INDICATION
     Dosage: 20 MG, QD
     Route: 048
  5. SOTALOL [Concomitant]
     Indication: PRODUCT USED FOR UNKNOWN INDICATION
     Dosage: 80 MG, BID
     Route: 048
  6. ESOMEPRAZOLE [Concomitant]
     Indication: PRODUCT USED FOR UNKNOWN INDICATION
     Dosage: 40 MG, QD
     Route: 048
  7. HYDROCODONE [Concomitant]
     Indication: PAIN
     Dosage: 7.5 MG / 500 MG, PRN
     Route: 048

REACTIONS (4)
  - CARDIAC DISORDER [None]
  - DYSPNOEA [None]
  - PAIN IN EXTREMITY [None]
  - VOMITING [None]
